FAERS Safety Report 8850233 (Version 1)
Quarter: 2012Q4

REPORT INFORMATION
  Report Type: 
  Country: US (occurrence: US)
  Receive Date: 20121019
  Receipt Date: 20121019
  Transmission Date: 20130627
  Serious: No
  Sender: FDA-Public Use
  Company Number: US-VERTEX PHARMACEUTICAL INC.-2012-022820

PATIENT
  Age: 61 Year
  Sex: Male
  Weight: 104 kg

DRUGS (3)
  1. INCIVEK [Suspect]
     Indication: HEPATITIS C
     Dosage: 3 DF, tid
     Route: 048
     Dates: start: 20120924, end: 20121007
  2. RIBAVIRIN [Suspect]
     Indication: HEPATITIS C
     Dosage: 3 DF, bid
     Dates: start: 20120924, end: 20121007
  3. PEG INTERFERON [Suspect]
     Indication: HEPATITIS C
     Dosage: UNK
     Dates: start: 20120924, end: 20121007

REACTIONS (2)
  - Off label use [Unknown]
  - Blood test abnormal [Unknown]
